FAERS Safety Report 11186776 (Version 1)
Quarter: 2015Q2

REPORT INFORMATION
  Report Type: Spontaneous
  Country: CN (occurrence: CN)
  Receive Date: 20150613
  Receipt Date: 20150613
  Transmission Date: 20150821
  Serious: Yes (Death, Hospitalization)
  Sender: FDA-Public Use
  Company Number: CN-MYLANLABS-2015M1018898

PATIENT

DRUGS (10)
  1. GLUCOSE [Concomitant]
     Active Substance: DEXTROSE
     Dosage: 100ML (CONC: 5%)
     Route: 041
     Dates: start: 20110903
  2. DEXAMETHASONE. [Suspect]
     Active Substance: DEXAMETHASONE
     Indication: PERIPHERAL SWELLING
  3. GLUCOSE [Concomitant]
     Active Substance: DEXTROSE
     Indication: PRODUCT USED FOR UNKNOWN INDICATION
     Dosage: 250ML (CONC: 5%)
     Route: 041
     Dates: start: 20110903
  4. SODIUM CHLORIDE. [Concomitant]
     Active Substance: SODIUM CHLORIDE
     Indication: PRODUCT USED FOR UNKNOWN INDICATION
     Dosage: 0.9%
     Route: 041
     Dates: start: 20110903
  5. CALCIUM GLUCONATE. [Interacting]
     Active Substance: CALCIUM GLUCONATE
     Indication: PAIN IN EXTREMITY
     Dosage: 100 MG/ML (2 VIALS-10ML SINGLE DOSE)
     Route: 041
     Dates: start: 20110903
  6. ASCORBIC ACID. [Concomitant]
     Active Substance: ASCORBIC ACID
     Indication: PRODUCT USED FOR UNKNOWN INDICATION
     Dosage: 3G
     Route: 041
     Dates: start: 20110903
  7. AMOXICILLIN. [Concomitant]
     Active Substance: AMOXICILLIN
     Indication: PRODUCT USED FOR UNKNOWN INDICATION
     Route: 048
  8. DEXAMETHASONE. [Suspect]
     Active Substance: DEXAMETHASONE
     Indication: PAIN IN EXTREMITY
     Dosage: 5MG
     Route: 041
     Dates: start: 20110903
  9. CALCIUM GLUCONATE. [Interacting]
     Active Substance: CALCIUM GLUCONATE
     Indication: PERIPHERAL SWELLING
  10. CLINDAMYCIN [Concomitant]
     Active Substance: CLINDAMYCIN\CLINDAMYCIN PHOSPHATE
     Indication: PRODUCT USED FOR UNKNOWN INDICATION
     Dosage: 0.9G
     Route: 041
     Dates: start: 20110903

REACTIONS (2)
  - Arrhythmia [Fatal]
  - Hypokalaemia [Fatal]
